FAERS Safety Report 21161951 (Version 1)
Quarter: 2022Q3

REPORT INFORMATION
  Report Type: Spontaneous
  Country: SE (occurrence: SE)
  Receive Date: 20220802
  Receipt Date: 20220802
  Transmission Date: 20221027
  Serious: Yes (Other)
  Sender: FDA-Public Use
  Company Number: SE-NOVARTISPH-NVSC2022SE174202

PATIENT
  Age: 7 Year
  Sex: Male

DRUGS (3)
  1. SOMATROPIN [Suspect]
     Active Substance: SOMATROPIN
     Indication: Growth hormone deficiency
     Dosage: DOSE INCREASED
     Route: 065
  2. SOMATROPIN [Suspect]
     Active Substance: SOMATROPIN
     Dosage: 0.4 MG, QD
     Route: 065
  3. SOMATROPIN [Suspect]
     Active Substance: SOMATROPIN
     Dosage: 0.033 MG/KG, QD
     Route: 065

REACTIONS (2)
  - Condition aggravated [Unknown]
  - Scoliosis [Unknown]
